FAERS Safety Report 6057637-6 (Version None)
Quarter: 2009Q1

REPORT INFORMATION
  Report Type: 
  Country: None (occurrence: None)
  Receive Date: 20090129
  Receipt Date: 20090117
  Transmission Date: 20090719
  Serious: Yes (Hospitalization, Other)
  Sender: FDA-Public Use
  Company Number: CA-ELI_LILLY_AND_COMPANY-CA200901005214

PATIENT
  Age: 67 Year
  Sex: Female

DRUGS (8)
  1. FORTEO [Suspect]
     Indication: OSTEOPOROSIS
     Dates: start: 20080514, end: 20081202
  2. SINEMET [Concomitant]
  3. COMTAN [Concomitant]
  4. MIRAPEX [Concomitant]
  5. NEURONTIN [Concomitant]
  6. EMPRACET [Concomitant]
  7. PREDNISONE [Concomitant]
  8. CALTRATE [Concomitant]

REACTIONS (4)
  - ABASIA [None]
  - ARTHROPATHY [None]
  - BACK PAIN [None]
  - PAIN IN EXTREMITY [None]
